FAERS Safety Report 11206415 (Version 1)
Quarter: 2015Q2

REPORT INFORMATION
  Report Type: Spontaneous
  Country: US (occurrence: None)
  Receive Date: 20150618
  Receipt Date: 20150618
  Transmission Date: 20150821
  Serious: Yes (Other)
  Sender: FDA-Public Use
  Company Number: None

PATIENT
  Age: 61 Year
  Sex: Male

DRUGS (6)
  1. OMEPRAZOLE. [Concomitant]
     Active Substance: OMEPRAZOLE
  2. VICTOZA [Suspect]
     Active Substance: LIRAGLUTIDE
     Indication: TYPE 2 DIABETES MELLITUS
     Route: 042
     Dates: start: 20141101, end: 20141114
  3. VALSARTAN AND HYDROCHLOROTHIAZIDE [Concomitant]
     Active Substance: HYDROCHLOROTHIAZIDE\VALSARTAN
  4. VITAMIN B [Concomitant]
     Active Substance: VITAMIN B
  5. ZOCOR [Concomitant]
     Active Substance: SIMVASTATIN
  6. PIOGLITAZONE [Concomitant]
     Active Substance: PIOGLITAZONE

REACTIONS (5)
  - Dizziness postural [None]
  - Hot flush [None]
  - Abdominal tenderness [None]
  - Abdominal pain upper [None]
  - Back pain [None]

NARRATIVE: CASE EVENT DATE: 20141114
